FAERS Safety Report 12547930 (Version 1)
Quarter: 2016Q3

REPORT INFORMATION
  Report Type: Other
  Country: US (occurrence: US)
  Receive Date: 20160712
  Receipt Date: 20160712
  Transmission Date: 20161109
  Serious: Yes (Death)
  Sender: FDA-Public Use
  Company Number: US-ORCHID HEALTHCARE-1054910

PATIENT
  Age: 48 Year
  Sex: Male

DRUGS (6)
  1. DOXAZOSIN [Suspect]
     Active Substance: DOXAZOSIN\DOXAZOSIN MESYLATE
     Route: 065
  2. HYDRALAZINE [Suspect]
     Active Substance: HYDRALAZINE HYDROCHLORIDE
     Route: 065
  3. AMLODIPINE BESYLATE. [Suspect]
     Active Substance: AMLODIPINE BESYLATE
     Route: 065
  4. HYDROCHLOROTHIAZIDE. [Suspect]
     Active Substance: HYDROCHLOROTHIAZIDE
     Route: 065
  5. CARVEDILOL. [Suspect]
     Active Substance: CARVEDILOL
     Route: 065
  6. LISINOPRIL. [Suspect]
     Active Substance: LISINOPRIL
     Route: 065

REACTIONS (15)
  - Pulmonary oedema [Unknown]
  - Shock haemorrhagic [Fatal]
  - Iatrogenic injury [Unknown]
  - Haemorrhage [Unknown]
  - Acute kidney injury [Unknown]
  - Blood lactic acid increased [Unknown]
  - Shock [Unknown]
  - Overdose [Fatal]
  - Unresponsive to stimuli [Unknown]
  - Retroperitoneal haemorrhage [Unknown]
  - Cardiomegaly [Unknown]
  - Troponin I increased [Unknown]
  - Peripheral ischaemia [Unknown]
  - Hypotension [Unknown]
  - Supraventricular tachycardia [Unknown]
